FAERS Safety Report 18240879 (Version 1)
Quarter: 2020Q3

REPORT INFORMATION
  Report Type: Spontaneous
  Country: US (occurrence: US)
  Receive Date: 20200905
  Receipt Date: 20200905
  Transmission Date: 20201103
  Serious: Yes (Disabling)
  Sender: FDA-Public Use
  Company Number: None

PATIENT
  Age: 58 Year
  Sex: Male
  Weight: 110.25 kg

DRUGS (2)
  1. BLUMEN ADVANCED HAND SANITIZER [Suspect]
     Active Substance: ALCOHOL
     Indication: COVID-19 PROPHYLAXIS
     Route: 061
     Dates: start: 20200320, end: 20200905
  2. CPAP [Concomitant]
     Active Substance: DEVICE

REACTIONS (7)
  - Fatigue [None]
  - Confusional state [None]
  - Headache [None]
  - Recalled product [None]
  - Myalgia [None]
  - Arthralgia [None]
  - Visual impairment [None]

NARRATIVE: CASE EVENT DATE: 20200904
